FAERS Safety Report 6819360-7 (Version None)
Quarter: 2010Q3

REPORT INFORMATION
  Report Type: 
  Country: None (occurrence: None)
  Receive Date: 20100707
  Receipt Date: 20100628
  Transmission Date: 20110219
  Serious: Yes (Other)
  Sender: FDA-Public Use
  Company Number: US-JNJFOC-20100700099

PATIENT
  Sex: Female
  Weight: 61.24 kg

DRUGS (5)
  1. DURAGESIC-100 [Suspect]
     Indication: PAIN IN EXTREMITY
     Route: 062
  2. DURAGESIC-100 [Suspect]
     Indication: BACK PAIN
     Route: 062
  3. FLUCONAZOLE [Concomitant]
     Indication: HEADACHE
     Route: 065
  4. MORPHINE [Concomitant]
     Indication: PAIN IN EXTREMITY
     Route: 048
  5. MORPHINE [Concomitant]
     Indication: BACK PAIN
     Route: 048

REACTIONS (6)
  - ABORTION SPONTANEOUS [None]
  - DRUG EXPOSURE BEFORE PREGNANCY [None]
  - EYE DISORDER [None]
  - PANIC ATTACK [None]
  - URTICARIA [None]
  - WEIGHT INCREASED [None]
